FAERS Safety Report 8336045-9 (Version None)
Quarter: 2012Q2

REPORT INFORMATION
  Report Type: 
  Country: None (occurrence: None)
  Receive Date: 20120501
  Receipt Date: 20120501
  Transmission Date: 20120825
  Serious: Yes (Hospitalization)
  Sender: FDA-Public Use
  Company Number: None

PATIENT
  Age: 88 Year
  Sex: Female
  Weight: 67.5 kg

DRUGS (11)
  1. LORAZEPAM [Concomitant]
  2. MEMANTINE HCL [Concomitant]
  3. GABAPENTIN [Suspect]
     Dosage: 1MG TID PO RECENT
     Route: 048
  4. AMLODIPINE [Concomitant]
  5. CYANOCOBALAMIN [Concomitant]
  6. APAP TAB [Concomitant]
  7. LISINOPRIL [Concomitant]
  8. LEVOTHYROXINE SODIUM [Concomitant]
  9. SIMVASTATIN [Concomitant]
  10. METOPROLOL TARTRATE [Concomitant]
  11. DONEPEZIL HCL [Concomitant]

REACTIONS (4)
  - UNRESPONSIVE TO STIMULI [None]
  - CONDITION AGGRAVATED [None]
  - RENAL FAILURE [None]
  - DEMENTIA [None]
